FAERS Safety Report 8495738 (Version 3)
Quarter: 2013Q1

REPORT INFORMATION
  Report Type: Report from Study
  Country: BR (occurrence: BR)
  Receive Date: 20120405
  Receipt Date: 20130318
  Transmission Date: 20140127
  Serious: Yes (Other)
  Sender: FDA-Public Use
  Company Number: BR-ROCHE-1051991

PATIENT
  Sex: Female
  Weight: 78 kg

DRUGS (2)
  1. MABTHERA [Suspect]
     Indication: RHEUMATOID ARTHRITIS
     Route: 042
  2. STILNOX [Concomitant]

REACTIONS (4)
  - Glaucoma [Not Recovered/Not Resolved]
  - Laryngeal disorder [Unknown]
  - Skin plaque [Recovered/Resolved]
  - Pruritus [Recovered/Resolved]
